FAERS Safety Report 15842896 (Version 1)
Quarter: 2019Q1

REPORT INFORMATION
  Report Type: Report from Study
  Country: US (occurrence: US)
  Receive Date: 20190118
  Receipt Date: 20190118
  Transmission Date: 20190417
  Serious: Yes (Hospitalization)
  Sender: FDA-Public Use
  Company Number: US-SAKK-2019SA011960AA

PATIENT
  Age: 55 Year
  Sex: Male

DRUGS (1)
  1. AGALSIDASE BETA [Suspect]
     Active Substance: AGALSIDASE BETA
     Indication: FABRY^S DISEASE
     Dosage: 105.00 , Q2
     Route: 041
     Dates: start: 20040322

REACTIONS (1)
  - Respiration abnormal [Recovered/Resolved]

NARRATIVE: CASE EVENT DATE: 201812
